FAERS Safety Report 7683232-9 (Version None)
Quarter: 2011Q3

REPORT INFORMATION
  Report Type: 
  Country: None (occurrence: None)
  Receive Date: 20110815
  Receipt Date: 20110808
  Transmission Date: 20111222
  Serious: Yes (Other)
  Sender: FDA-Public Use
  Company Number: US-TEVA-295463USA

PATIENT
  Age: 43 Year
  Sex: Male

DRUGS (2)
  1. PROPOFOL [Suspect]
     Dosage: 50-75 UG/KG/MIN
  2. REMIFENTANIL [Suspect]
     Dosage: 0.1-0.2 UG/KGLMIN

REACTIONS (1)
  - COMPARTMENT SYNDROME [None]
